FAERS Safety Report 5810368-7 (Version None)
Quarter: 2008Q3

REPORT INFORMATION
  Report Type: 
  Country: None (occurrence: None)
  Receive Date: 20080715
  Receipt Date: 20080701
  Transmission Date: 20090109
  Serious: Yes (Hospitalization, Other)
  Sender: FDA-Public Use
  Company Number: US-ELI_LILLY_AND_COMPANY-US200807000280

PATIENT
  Sex: Female

DRUGS (1)
  1. FORTEO [Suspect]
     Indication: OSTEOPOROSIS

REACTIONS (7)
  - APHASIA [None]
  - CEREBROVASCULAR ACCIDENT [None]
  - DYSPHONIA [None]
  - ENDOTRACHEAL INTUBATION [None]
  - FOOD POISONING [None]
  - MEMORY IMPAIRMENT [None]
  - SPEECH DISORDER [None]
